FAERS Safety Report 5247322-2 (Version None)
Quarter: 2007Q1

REPORT INFORMATION
  Report Type: 
  Country: None (occurrence: None)
  Receive Date: 20070223
  Receipt Date: 20070223
  Transmission Date: 20070707
  Serious: Yes (Other)
  Sender: FDA-Public Use
  Company Number: None

PATIENT
  Age: 74 Year
  Sex: Male
  Weight: 117.9352 kg

DRUGS (2)
  1. MUCINEX DM [Suspect]
     Indication: ANTITUSSIVE THERAPY
     Dosage: TWO TABS.  EVERY 12 HOURS PO  ONE TIME ONLY
     Route: 048
     Dates: start: 20070201, end: 20070201
  2. MUCINEX DM [Suspect]
     Dosage: ONE TIME ONLY
     Dates: start: 20070213, end: 20070213

REACTIONS (1)
  - ADVERSE DRUG REACTION [None]
